FAERS Safety Report 18214265 (Version 2)
Quarter: 2020Q3

REPORT INFORMATION
  Report Type: Spontaneous
  Country: BR (occurrence: BR)
  Receive Date: 20200831
  Receipt Date: 20200908
  Transmission Date: 20201103
  Serious: Yes (Other)
  Sender: FDA-Public Use
  Company Number: BR-GALDERMA-BR2020039029

PATIENT
  Age: 18 Year
  Sex: Female
  Weight: 60 kg

DRUGS (1)
  1. EPIDUO [Suspect]
     Active Substance: ADAPALENE\BENZOYL PEROXIDE
     Indication: ACNE
     Dosage: 0.1%/2.5%
     Route: 061
     Dates: start: 20200717, end: 2020

REACTIONS (7)
  - Swelling of eyelid [Recovering/Resolving]
  - Skin exfoliation [Recovered/Resolved]
  - Skin burning sensation [Recovering/Resolving]
  - Erythema [Recovered/Resolved]
  - Eyelid exfoliation [Recovering/Resolving]
  - Eye swelling [Recovered/Resolved]
  - Swelling face [Recovered/Resolved]

NARRATIVE: CASE EVENT DATE: 2020
